FAERS Safety Report 20098499 (Version 1)
Quarter: 2021Q4

REPORT INFORMATION
  Report Type: Spontaneous
  Country: HU (occurrence: HU)
  Receive Date: 20211122
  Receipt Date: 20211122
  Transmission Date: 20220303
  Serious: Yes (Hospitalization, Other)
  Sender: FDA-Public Use
  Company Number: HU-EGIS-HUN-2021-0836

PATIENT
  Sex: Female

DRUGS (22)
  1. VALSARTAN [Suspect]
     Active Substance: VALSARTAN
     Indication: Hypertension
     Dosage: 160 MILLIGRAM, Q8H
  2. CORDAFLEX [Suspect]
     Active Substance: NIFEDIPINE
     Indication: Hypertension
     Dosage: 5 MILLIGRAM, 1 PUFF IF BP IS BETWEEN 160-170, 2 PUFFS IF BP IS BETWEEN 170-200
  3. CAPTOPRIL [Suspect]
     Active Substance: CAPTOPRIL
     Indication: Hypertension
     Dosage: UNK, OCCASIONALLY
  4. CAPTOPRIL [Suspect]
     Active Substance: CAPTOPRIL
     Dosage: 12.5 MILLIGRAM, Q6H
     Dates: start: 2020
  5. RILMENIDINE [Suspect]
     Active Substance: RILMENIDINE
     Indication: Hypertension
     Dosage: 1 MILLIGRAM, Q8H
  6. CARVEDILOL [Suspect]
     Active Substance: CARVEDILOL
     Indication: Hypertension
     Dosage: 12.5 MILLIGRAM
  7. INSPRA [Suspect]
     Active Substance: EPLERENONE
     Indication: Hypertension
     Dosage: 50 MILLIGRAM, QD, IN THE MORNING
     Dates: start: 202103
  8. AMLODIPINE BESYLATE\LISINOPRIL [Suspect]
     Active Substance: AMLODIPINE BESYLATE\LISINOPRIL
     Indication: Hypertension
     Dosage: 10 MILLIGRAM, 10 MG, ONLY ONE BLISTER
  9. AMLODIPINE BESYLATE\INDAPAMIDE\PERINDOPRIL ARGININE [Suspect]
     Active Substance: AMLODIPINE BESYLATE\INDAPAMIDE\PERINDOPRIL ARGININE
     Indication: Hypertension
     Dosage: UNK
  10. METHYLDOPA [Concomitant]
     Active Substance: METHYLDOPA
     Indication: Hypertension
     Dosage: 250 MILLIGRAM
  11. MAGNESIUM CHLORIDE;PYRIDOXINE [Concomitant]
     Indication: Sedative therapy
     Dosage: UNK
  12. PANANGIN FORTE [Concomitant]
     Indication: Product used for unknown indication
     Dosage: UNK, Q8H
  13. DIOVAN [Concomitant]
     Active Substance: VALSARTAN
     Indication: Product used for unknown indication
     Dosage: 160 MILLIGRAM, BID
  14. AMLODIPINE [Concomitant]
     Active Substance: AMLODIPINE BESYLATE
     Indication: Product used for unknown indication
     Dosage: UNK UNK, QD, N THE MORNING, 5/160 MG
  15. CLOPIDOGREL BISULFATE [Concomitant]
     Active Substance: CLOPIDOGREL BISULFATE
     Indication: Product used for unknown indication
     Dosage: 75 MILLIGRAM, QD, IN THE MORNING
  16. DOXAZOSIN MESYLATE [Concomitant]
     Active Substance: DOXAZOSIN MESYLATE
     Indication: Product used for unknown indication
     Dosage: UNK
  17. CLOPIDOGREL [Concomitant]
     Active Substance: CLOPIDOGREL BISULFATE
     Indication: Thrombosis prophylaxis
     Dosage: UNK
  18. NEBIVOLOL HYDROCHLORIDE [Concomitant]
     Active Substance: NEBIVOLOL HYDROCHLORIDE
     Indication: Product used for unknown indication
     Dosage: 5 MILLIGRAM, QD
  19. IVABRADINE ANPHARM [Concomitant]
     Indication: Arrhythmia
     Dosage: 7.5 MILLIGRAM, 7.5 MG (2X1/2 TABL DAILY)
  20. ASA PROTECT PHARMAVIT [Concomitant]
     Indication: Thrombosis prophylaxis
     Dosage: 100 MILLIGRAM, QD, IN THE MORNING
  21. XANAX [Concomitant]
     Active Substance: ALPRAZOLAM
     Indication: Product used for unknown indication
     Dosage: 1 MILLIGRAM, BID
  22. OXYCORT                            /00256101/ [Concomitant]
     Indication: Product used for unknown indication
     Dosage: UNK

REACTIONS (35)
  - Constipation [Unknown]
  - Blood glucose increased [Unknown]
  - Leukopenia [Unknown]
  - Vision blurred [Unknown]
  - Pulmonary oedema [Unknown]
  - Hypertension [Unknown]
  - Visual impairment [Unknown]
  - Depression [Not Recovered/Not Resolved]
  - Dyspnoea [Unknown]
  - Nocturia [Unknown]
  - Dehydration [Unknown]
  - Hypercoagulation [Unknown]
  - Vertigo [Unknown]
  - Palpitations [Unknown]
  - Arthralgia [Unknown]
  - Haematuria [Unknown]
  - Skin wrinkling [Unknown]
  - Alopecia [Unknown]
  - Hypoaesthesia [Unknown]
  - Genital blister [Unknown]
  - Product prescribing error [Unknown]
  - Treatment noncompliance [Unknown]
  - Dry mouth [Unknown]
  - Weight increased [Unknown]
  - Hypercholesterolaemia [Unknown]
  - Hypoaesthesia [Unknown]
  - Oedema peripheral [Unknown]
  - Gastrooesophageal sphincter insufficiency [Unknown]
  - Insomnia [Unknown]
  - Flatulence [Unknown]
  - Urinary tract infection [Unknown]
  - Product dose omission issue [Unknown]
  - Cough [Unknown]
  - Abdominal pain [Unknown]
  - Headache [Unknown]
